FAERS Safety Report 5746607-0 (Version None)
Quarter: 2008Q2

REPORT INFORMATION
  Report Type: 
  Country: None (occurrence: None)
  Receive Date: 20080522
  Receipt Date: 20080513
  Transmission Date: 20081010
  Serious: Yes (Other)
  Sender: FDA-Public Use
  Company Number: AT-JNJFOC-20080502494

PATIENT
  Age: 55 Year
  Sex: Female

DRUGS (1)
  1. IONSYS [Suspect]
     Indication: PROCEDURAL PAIN
     Route: 044

REACTIONS (2)
  - BURNS SECOND DEGREE [None]
  - WRONG TECHNIQUE IN DRUG USAGE PROCESS [None]
